FAERS Safety Report 10450833 (Version 2)
Quarter: 2014Q3

REPORT INFORMATION
  Report Type: Spontaneous
  Country: JP (occurrence: None)
  Receive Date: 20140910
  Receipt Date: 20140922
  Transmission Date: 20150326
  Serious: Yes (Other)
  Sender: FDA-Public Use
  Company Number: KAD201408-001057

PATIENT
  Age: 57 Year
  Sex: Male

DRUGS (5)
  1. PEGINTERFERON ALFA-2B (PEGINTERFERON ALFA-2B) [Suspect]
     Active Substance: PEGINTERFERON ALFA-2B
     Indication: CHRONIC HEPATITIS C
     Dates: start: 201204
  2. TELAPREVIR [Suspect]
     Active Substance: TELAPREVIR
     Indication: CHRONIC HEPATITIS C
     Dates: start: 201204
  3. ALLOPURINOL. [Suspect]
     Active Substance: ALLOPURINOL
     Indication: CHRONIC HEPATITIS C
  4. RIBAVIRIN. [Suspect]
     Active Substance: RIBAVIRIN
     Indication: CHRONIC HEPATITIS C
     Dates: start: 201107, end: 201202
  5. PEGINTERFERON ALFA-2B (PEGINTERFERON ALFA-2B) [Suspect]
     Active Substance: PEGINTERFERON ALFA-2B
     Indication: CHRONIC HEPATITIS C
     Dates: start: 201107, end: 201202

REACTIONS (1)
  - Erythema multiforme [None]
